FAERS Safety Report 9227949 (Version 1)
Quarter: 2013Q2

REPORT INFORMATION
  Report Type: Spontaneous
  Country: US (occurrence: None)
  Receive Date: 20130411
  Receipt Date: 20130411
  Transmission Date: 20140414
  Serious: Yes (Other)
  Sender: FDA-Public Use
  Company Number: None

PATIENT
  Age: 63 Year
  Sex: Female
  Weight: 64.86 kg

DRUGS (1)
  1. ACTONEL [Suspect]
     Indication: OSTEOPOROSIS
     Dosage: 1 TABLET ONCE A MONTH
     Dates: start: 20130407, end: 20130407

REACTIONS (6)
  - Pyrexia [None]
  - Flushing [None]
  - Pain of skin [None]
  - Paraesthesia [None]
  - Feeling hot [None]
  - Diarrhoea [None]
